FAERS Safety Report 7624454-2 (Version None)
Quarter: 2011Q3

REPORT INFORMATION
  Report Type: 
  Country: None (occurrence: None)
  Receive Date: 20110720
  Receipt Date: 20110713
  Transmission Date: 20111222
  Serious: Yes (Hospitalization)
  Sender: FDA-Public Use
  Company Number: US-BAYER-201021849NA

PATIENT
  Age: 46 Year
  Sex: Female
  Weight: 65.76 kg

DRUGS (6)
  1. MAALOX [Concomitant]
     Dosage: UNK UNK, PRN
  2. YAZ [Suspect]
     Indication: PREMENSTRUAL SYNDROME
     Dosage: AS USED DOSE: UNK
     Route: 048
     Dates: start: 20070601, end: 20090701
  3. LOVENOX [Concomitant]
     Indication: DEEP VEIN THROMBOSIS
  4. NSAID'S [Concomitant]
  5. YAZ [Suspect]
     Indication: MENORRHAGIA
  6. NEXIUM [Concomitant]
     Dosage: UNK UNK, PRN

REACTIONS (10)
  - ABDOMINAL TENDERNESS [None]
  - THROMBOPHLEBITIS SUPERFICIAL [None]
  - BILE DUCT STONE [None]
  - ABDOMINAL PAIN UPPER [None]
  - PAIN IN EXTREMITY [None]
  - CHOLELITHIASIS [None]
  - CHOLECYSTITIS ACUTE [None]
  - NAUSEA [None]
  - ERYTHEMA [None]
  - OEDEMA PERIPHERAL [None]
